FAERS Safety Report 22741638 (Version 3)
Quarter: 2025Q2

REPORT INFORMATION
  Report Type: Other
  Country: IT (occurrence: IT)
  Receive Date: 20230724
  Receipt Date: 20250404
  Transmission Date: 20250717
  Serious: Yes (Death, Hospitalization)
  Sender: EMD SERONO INC
  Company Number: None

PATIENT
  Age: 82 Year
  Sex: Male
  Weight: 70 kg

DRUGS (1)
  1. BAVENCIO [Suspect]
     Active Substance: AVELUMAB
     Indication: Transitional cell carcinoma metastatic
     Dates: start: 20221221, end: 20230104

REACTIONS (12)
  - Quadriparesis [Fatal]
  - Dysphagia [Fatal]
  - Dysphonia [Fatal]
  - Diplopia [Fatal]
  - Eyelid ptosis [Fatal]
  - Muscular weakness [Fatal]
  - Blood creatine phosphokinase increased [Fatal]
  - Cardiac arrest [Fatal]
  - Atrioventricular block [Fatal]
  - Respiratory failure [Fatal]
  - Myocardial necrosis marker increased [Fatal]
  - Blood lactate dehydrogenase increased [Fatal]

NARRATIVE: CASE EVENT DATE: 20230105
